FAERS Safety Report 6289602-8 (Version None)
Quarter: 2009Q3

REPORT INFORMATION
  Report Type: 
  Country: None (occurrence: None)
  Receive Date: 20090729
  Receipt Date: 20090729
  Transmission Date: 20100115
  Serious: No
  Sender: FDA-Public Use
  Company Number: None

PATIENT
  Sex: Male
  Weight: 120.2032 kg

DRUGS (2)
  1. RAMIPRIL [Suspect]
     Indication: CORONARY ARTERY DISEASE
     Dosage: 5 MG BID BY MOUTH WINTER OF 2008
     Route: 048
     Dates: start: 20080101
  2. RAMIPRIL [Suspect]
     Indication: HYPERTENSION
     Dosage: 5 MG BID BY MOUTH WINTER OF 2008
     Route: 048
     Dates: start: 20080101

REACTIONS (1)
  - HEART RATE INCREASED [None]
